FAERS Safety Report 5387041-5 (Version None)
Quarter: 2007Q3

REPORT INFORMATION
  Report Type: 
  Country: None (occurrence: None)
  Receive Date: 20070713
  Receipt Date: 20070705
  Transmission Date: 20080115
  Serious: Yes (Disabling)
  Sender: FDA-Public Use
  Company Number: DE-ABBOTT-05P-062-0287129-00

PATIENT
  Sex: Male

DRUGS (1)
  1. KLACID [Suspect]
     Indication: BORRELIA INFECTION
     Route: 048
     Dates: start: 20041102, end: 20041121

REACTIONS (2)
  - ANOSMIA [None]
  - BRONCHITIS [None]
